FAERS Safety Report 7162168-6 (Version None)
Quarter: 2010Q4

REPORT INFORMATION
  Report Type: 
  Country: None (occurrence: None)
  Receive Date: 20101215
  Receipt Date: 20090903
  Transmission Date: 20110411
  Serious: Yes (Hospitalization, Other)
  Sender: FDA-Public Use
  Company Number: US-PFIZER INC-2009233795

PATIENT
  Sex: Female

DRUGS (14)
  1. LYRICA [Suspect]
     Indication: MULTIPLE SCLEROSIS
     Dosage: 100 MG, 3X/DAY
     Route: 048
     Dates: start: 20080626
  2. LYRICA [Suspect]
     Indication: NEURALGIA
  3. NEURONTIN [Suspect]
     Indication: NEURALGIA
     Dosage: 300 MG, 2X/DAY
     Route: 048
     Dates: start: 20080908
  4. NEURONTIN [Suspect]
     Indication: ANXIETY
  5. AMLODIPINE BESYLATE [Suspect]
     Indication: HYPERTENSION
     Dosage: 5 MG, 1X/DAY
     Dates: start: 20081101
  6. AVAPRO [Suspect]
     Indication: HYPERTENSION
     Dosage: 225 MG, 1X/DAY
     Route: 048
     Dates: start: 20080930
  7. OXYCONTIN [Suspect]
     Indication: PAIN
     Dosage: 30 MG, 2X/DAY
     Route: 048
     Dates: start: 20080908
  8. CELEBREX [Concomitant]
     Dosage: 200 MG, 1X/DAY
     Route: 048
     Dates: start: 20080626
  9. NEXIUM [Concomitant]
     Dosage: 40 MG, 1X/DAY
     Route: 048
     Dates: start: 20080626
  10. POTASSIUM CHLORIDE [Concomitant]
     Indication: HYPOKALAEMIA
     Dosage: 20 MEQ, 2X/DAY
     Route: 048
     Dates: start: 20080626, end: 20090624
  11. MIRALAX [Concomitant]
     Dosage: 17 G IN 8 OZ. WATER, 2X/DAY
     Dates: start: 20080626
  12. AMITIZA [Concomitant]
     Dosage: 24 UG, 2X/DAY
     Dates: start: 20080626
  13. CYMBALTA [Concomitant]
     Dosage: 120 MG, 1X/DAY AT BEDTIME
     Dates: start: 20080626
  14. NORTRIPTYLINE [Concomitant]
     Dosage: 25 MG, 1X/DAY AT BEDTIME
     Dates: start: 20080626, end: 20090226

REACTIONS (4)
  - INTESTINAL OBSTRUCTION [None]
  - PAIN [None]
  - PAIN IN EXTREMITY [None]
  - WEIGHT INCREASED [None]
